FAERS Safety Report 12368994 (Version 2)
Quarter: 2019Q1

REPORT INFORMATION
  Report Type: Spontaneous
  Country: US (occurrence: US)
  Receive Date: 20160513
  Receipt Date: 20190121
  Transmission Date: 20190417
  Serious: No
  Sender: FDA-Public Use
  Company Number: US-PFIZER INC-2016225015

PATIENT
  Age: 88 Year
  Sex: Female
  Weight: 53.52 kg

DRUGS (3)
  1. LYRICA [Suspect]
     Active Substance: PREGABALIN
     Dosage: 50 MG, 2X/DAY
  2. LYRICA [Suspect]
     Active Substance: PREGABALIN
     Indication: POST HERPETIC NEURALGIA
     Dosage: 25 MG, 2X/DAY
     Dates: end: 20160415
  3. LYRICA [Suspect]
     Active Substance: PREGABALIN
     Indication: BREAKTHROUGH PAIN
     Dosage: 25 MG, ONCE A DAY AS NEEDED

REACTIONS (4)
  - Malaise [Unknown]
  - Product use issue [Unknown]
  - Headache [Not Recovered/Not Resolved]
  - Eye pain [Not Recovered/Not Resolved]

NARRATIVE: CASE EVENT DATE: 20160416
